FAERS Safety Report 15498146 (Version 1)
Quarter: 2018Q4

REPORT INFORMATION
  Report Type: Spontaneous
  Country: US (occurrence: US)
  Receive Date: 20181005
  Receipt Date: 20181005
  Transmission Date: 20190205
  Serious: No
  Sender: FDA-Public Use
  Company Number: None

PATIENT
  Age: 40 Year
  Sex: Female
  Weight: 73.94 kg

DRUGS (2)
  1. OTEZLA [Suspect]
     Active Substance: APREMILAST
     Indication: CEREBELLAR ATAXIA
     Dosage: AS DIRECTED
     Route: 048
     Dates: start: 201809
  2. OTEZLA [Suspect]
     Active Substance: APREMILAST
     Indication: PSORIASIS
     Dosage: AS DIRECTED
     Route: 048
     Dates: start: 201809

REACTIONS (3)
  - Contusion [None]
  - Fall [None]
  - Chest injury [None]
